FAERS Safety Report 8826923 (Version 2)
Quarter: 2013Q1

REPORT INFORMATION
  Report Type: Spontaneous
  Country: BR (occurrence: BR)
  Receive Date: 20121005
  Receipt Date: 20130109
  Transmission Date: 20140127
  Serious: Yes (Hospitalization)
  Sender: FDA-Public Use
  Company Number: BR-ASTRAZENECA-2012SE75725

PATIENT
  Sex: Female

DRUGS (2)
  1. CRESTOR [Suspect]
     Route: 048
     Dates: start: 2005, end: 2010
  2. CRESTOR [Suspect]
     Route: 048
     Dates: start: 2010

REACTIONS (2)
  - Breast cancer [Unknown]
  - Blood cholesterol increased [Not Recovered/Not Resolved]
